FAERS Safety Report 9909625 (Version 3)
Quarter: 2014Q2

REPORT INFORMATION
  Report Type: Spontaneous
  Country: US (occurrence: US)
  Receive Date: 20140219
  Receipt Date: 20140415
  Transmission Date: 20141212
  Serious: Yes (Hospitalization)
  Sender: FDA-Public Use
  Company Number: US-GLAXOSMITHKLINE-A1060832A

PATIENT
  Age: 59 Year
  Sex: Female

DRUGS (15)
  1. PROMACTA [Suspect]
     Indication: IMMUNE THROMBOCYTOPENIC PURPURA
     Dosage: 25MG PER DAY
     Route: 048
     Dates: start: 201301
  2. NITROFURANTOIN MONOHYDRATE [Concomitant]
  3. TYLENOL [Concomitant]
  4. ASPIRIN [Concomitant]
  5. COLACE [Concomitant]
  6. LASIX [Concomitant]
  7. TRADJENTA [Concomitant]
  8. LISINOPRIL [Concomitant]
  9. DAILY VITAMIN [Concomitant]
  10. NADOLOL [Concomitant]
  11. OMEPRAZOLE [Concomitant]
  12. IRON [Concomitant]
  13. FIBER PILL [Concomitant]
  14. SPIRONOLACTONE [Concomitant]
  15. ANTIBIOTIC [Concomitant]
     Route: 042

REACTIONS (9)
  - Transfusion [Recovering/Resolving]
  - Urinary tract infection [Recovering/Resolving]
  - Fatigue [Recovering/Resolving]
  - Asthenia [Recovering/Resolving]
  - Chromaturia [Recovering/Resolving]
  - Depressed mood [Recovering/Resolving]
  - Platelet count decreased [Recovering/Resolving]
  - Drug administration error [Recovering/Resolving]
  - Treatment noncompliance [Recovering/Resolving]
